FAERS Safety Report 6751583-8 (Version None)
Quarter: 2010Q2

REPORT INFORMATION
  Report Type: 
  Country: None (occurrence: None)
  Receive Date: 20100526
  Receipt Date: 20100512
  Transmission Date: 20101027
  Serious: Yes (Other)
  Sender: FDA-Public Use
  Company Number: GB-DEXPHARM-20100596

PATIENT
  Age: 6 Decade
  Sex: Female

DRUGS (1)
  1. CHLORAPREP [Suspect]
     Dosage: TOPICAL
     Route: 061
     Dates: start: 20100420

REACTIONS (5)
  - DYSPNOEA [None]
  - ERYTHEMA [None]
  - PRURITUS [None]
  - SKIN WARM [None]
  - SNEEZING [None]
